FAERS Safety Report 5825169-3 (Version None)
Quarter: 2008Q3

REPORT INFORMATION
  Report Type: 
  Country: None (occurrence: None)
  Receive Date: 20080729
  Receipt Date: 20080717
  Transmission Date: 20090109
  Serious: Yes (Hospitalization, Other)
  Sender: FDA-Public Use
  Company Number: PHHY2008GB15062

PATIENT
  Sex: Male

DRUGS (2)
  1. CLOZARIL [Suspect]
     Indication: SCHIZOPHRENIA
     Dosage: UNK
     Dates: start: 20070831, end: 20080604
  2. DEPIXOL [Concomitant]

REACTIONS (8)
  - ACIDOSIS [None]
  - CONVULSION [None]
  - DRUG LEVEL [None]
  - HYPOTENSION [None]
  - LOSS OF CONSCIOUSNESS [None]
  - OVERDOSE [None]
  - PSYCHOTIC DISORDER [None]
  - TACHYCARDIA [None]
